FAERS Safety Report 21728175 (Version 1)
Quarter: 2022Q4

REPORT INFORMATION
  Report Type: Report from Study
  Country: CA (occurrence: CA)
  Receive Date: 20221214
  Receipt Date: 20221214
  Transmission Date: 20230112
  Serious: Yes (Other)
  Sender: FDA-Public Use
  Company Number: CA-JNJFOC-20221216271

PATIENT
  Age: 43 Year
  Sex: Female

DRUGS (4)
  1. SIMPONI [Suspect]
     Active Substance: GOLIMUMAB
     Indication: Ankylosing spondylitis
     Route: 058
     Dates: start: 20210519
  2. SIMPONI [Suspect]
     Active Substance: GOLIMUMAB
     Indication: Coeliac disease
  3. SIMPONI [Suspect]
     Active Substance: GOLIMUMAB
     Indication: Type 1 diabetes mellitus
  4. SIMPONI [Suspect]
     Active Substance: GOLIMUMAB
     Indication: Dermatitis herpetiformis

REACTIONS (1)
  - COVID-19 [Unknown]

NARRATIVE: CASE EVENT DATE: 20221202
